FAERS Safety Report 14190023 (Version 2)
Quarter: 2017Q4

REPORT INFORMATION
  Report Type: Spontaneous
  Country: AR (occurrence: AR)
  Receive Date: 20171115
  Receipt Date: 20171208
  Transmission Date: 20180321
  Serious: Yes (Other)
  Sender: FDA-Public Use
  Company Number: AR-ABBVIE-17K-007-2163839-00

PATIENT
  Age: 44 Year
  Sex: Female
  Weight: 103 kg

DRUGS (1)
  1. HUMIRA [Suspect]
     Active Substance: ADALIMUMAB
     Indication: ANKYLOSING SPONDYLITIS
     Route: 058
     Dates: start: 201710, end: 20171110

REACTIONS (16)
  - Injection site haematoma [Recovered/Resolved]
  - Metrorrhagia [Recovered/Resolved]
  - Injection site reaction [Unknown]
  - Injection site swelling [Unknown]
  - Headache [Recovered/Resolved]
  - Hyperglycaemia [Recovered/Resolved]
  - Capillary fragility [Unknown]
  - Drug administered at inappropriate site [Unknown]
  - Haematoma [Recovered/Resolved]
  - White blood cell count increased [Recovered/Resolved]
  - Malaise [Recovered/Resolved]
  - Depression [Recovered/Resolved]
  - Anaemia [Recovered/Resolved]
  - Injection site haematoma [Recovered/Resolved]
  - Asthenia [Recovered/Resolved]
  - Haematoma [Recovered/Resolved]

NARRATIVE: CASE EVENT DATE: 2017
